FAERS Safety Report 16390044 (Version 2)
Quarter: 2020Q1

REPORT INFORMATION
  Report Type: Spontaneous
  Country: CA (occurrence: CA)
  Receive Date: 20190604
  Receipt Date: 20200131
  Transmission Date: 20200409
  Serious: Yes (Hospitalization)
  Sender: FDA-Public Use
  Company Number: CA-009507513-1701CAN011428

PATIENT
  Age: 52 Year
  Sex: Male

DRUGS (52)
  1. PREDNISOLONE ACETATE. [Suspect]
     Active Substance: PREDNISOLONE ACETATE
     Dosage: 1 DOSAGE FORM, 1 EVERY 1 DAY
     Route: 065
  2. PREDNISOLONE ACETATE. [Suspect]
     Active Substance: PREDNISOLONE ACETATE
     Dosage: 3 DOSAGE FORM, 1 EVERY 1 DAY
     Route: 047
  3. BESIFLOXACIN HYDROCHLORIDE [Suspect]
     Active Substance: BESIFLOXACIN HYDROCHLORIDE
     Dosage: 3 EVERY 1 DAY
     Route: 047
  4. PREDNISOLONE. [Suspect]
     Active Substance: PREDNISOLONE
     Dosage: 4 EVERY 1 DAY
     Route: 065
  5. MOXIFLOXACIN. [Suspect]
     Active Substance: MOXIFLOXACIN
     Dosage: 3 EVERY 1 DAY
     Route: 047
  6. PREDNISOLONE ACETATE. [Suspect]
     Active Substance: PREDNISOLONE ACETATE
     Dosage: 3 EVERY 1 DAYS
     Route: 065
  7. EPIPEN [Suspect]
     Active Substance: EPINEPHRINE
     Dosage: STRENGTH: 0.3MG/0.3 ML, AUTO INJECTOR, SOLUTION INTRAMUSCULAR
     Route: 030
  8. PREDNISONE. [Suspect]
     Active Substance: PREDNISONE
     Dosage: 50 MILLIGRAM, 3 EVERY 1 DAY
     Route: 047
  9. MOXIFLOXACIN. [Suspect]
     Active Substance: MOXIFLOXACIN
     Indication: PRODUCT USED FOR UNKNOWN INDICATION
     Dosage: 1 EVERY 1 DAY
     Route: 047
  10. NASONEX [Suspect]
     Active Substance: MOMETASONE FUROATE
     Dosage: 2 DOSAGE FORM, 1 EVERY 1 DAY, DOSAGE FORM: SPRAY, METERED DOSE
     Route: 006
  11. PREDNISOLONE ACETATE. [Suspect]
     Active Substance: PREDNISOLONE ACETATE
     Dosage: 50 MILLIGRAM, 3 EVERY 1 DAYS
     Route: 047
  12. BETAXOLOL HYDROCHLORIDE. [Suspect]
     Active Substance: BETAXOLOL HYDROCHLORIDE
     Indication: PRODUCT USED FOR UNKNOWN INDICATION
     Dosage: 1.0 GTT 1 EVERY 1 DAY
     Route: 047
  13. EPIPEN [Suspect]
     Active Substance: EPINEPHRINE
     Indication: DRUG HYPERSENSITIVITY
     Dosage: (STRENGTH: 0.15MG/0.3ML) AS REQUIRED, SOLUTION FOR INTRAMUSCULAR INJECTION
     Route: 030
  14. PREDNISOLONE. [Suspect]
     Active Substance: PREDNISOLONE
     Dosage: 2 EVERY 1 DAY
     Route: 065
  15. NASONEX [Suspect]
     Active Substance: MOMETASONE FUROATE
     Dosage: 1 EVERY 1 DAY
     Route: 006
  16. PREDNISOLONE ACETATE. [Suspect]
     Active Substance: PREDNISOLONE ACETATE
     Indication: PRODUCT USED FOR UNKNOWN INDICATION
     Dosage: 4 EVERY 1 DAYS
     Route: 065
  17. BETAXOLOL HYDROCHLORIDE. [Suspect]
     Active Substance: BETAXOLOL HYDROCHLORIDE
     Dosage: 1 EVERY 1 DAY
     Route: 047
  18. PREDNISONE. [Suspect]
     Active Substance: PREDNISONE
     Indication: PRODUCT USED FOR UNKNOWN INDICATION
     Dosage: 50 MG, 1 EVERY 1 DAY
     Route: 065
  19. MOXIFLOXACIN HYDROCHLORIDE. [Suspect]
     Active Substance: MOXIFLOXACIN HYDROCHLORIDE
     Indication: PRODUCT USED FOR UNKNOWN INDICATION
     Dosage: 3 GTT DROPS, 1 EVERY 1 DAY
     Route: 047
  20. PREDNISOLONE. [Suspect]
     Active Substance: PREDNISOLONE
     Indication: PRODUCT USED FOR UNKNOWN INDICATION
     Dosage: 2 DOSAGE FORM, 1 EVERY 1 DAY
     Route: 065
  21. PREDNISOLONE. [Suspect]
     Active Substance: PREDNISOLONE
     Dosage: 3 DOSAGE FORM, 1 EVERY 1 DAY
     Route: 065
  22. MOXIFLOXACIN HYDROCHLORIDE. [Suspect]
     Active Substance: MOXIFLOXACIN HYDROCHLORIDE
     Dosage: 3 EVERY 1 DAY
     Route: 047
  23. PREDNISOLONE SODIUM PHOSPHATE. [Suspect]
     Active Substance: PREDNISOLONE SODIUM PHOSPHATE
     Indication: PRODUCT USED FOR UNKNOWN INDICATION
     Dosage: 1 EVERY 1 DAY
     Route: 065
  24. PREDNISOLONE SODIUM PHOSPHATE. [Suspect]
     Active Substance: PREDNISOLONE SODIUM PHOSPHATE
     Dosage: 2 EVERY 1 DAY
     Route: 065
  25. PREDNISOLONE SODIUM PHOSPHATE. [Suspect]
     Active Substance: PREDNISOLONE SODIUM PHOSPHATE
     Dosage: 3 EVERY 1 DAY
     Route: 065
  26. PREDNISOLONE SODIUM PHOSPHATE. [Suspect]
     Active Substance: PREDNISOLONE SODIUM PHOSPHATE
     Dosage: 3 DOSAGE FORM, 1 EVERY 1 DAY
     Route: 065
  27. PREDNISOLONE ACETATE. [Suspect]
     Active Substance: PREDNISOLONE ACETATE
     Dosage: 4 DOSAGE FORM, 1 EVERY 1 DAY
     Route: 065
  28. BESIFLOXACIN HYDROCHLORIDE [Suspect]
     Active Substance: BESIFLOXACIN HYDROCHLORIDE
     Indication: PRODUCT USED FOR UNKNOWN INDICATION
     Dosage: 3.0 GTT , 1 EVERY 1 DAY
     Route: 047
  29. BESIFLOXACIN HYDROCHLORIDE [Suspect]
     Active Substance: BESIFLOXACIN HYDROCHLORIDE
     Dosage: 1 EVERY 1 DAY
     Route: 047
  30. CIALIS [Suspect]
     Active Substance: TADALAFIL
     Indication: PRODUCT USED FOR UNKNOWN INDICATION
     Dosage: 2 DOSAGE FORM,1 EVERY 1 DAY
     Route: 065
  31. CIALIS [Suspect]
     Active Substance: TADALAFIL
     Dosage: 1 EVERY 1 DAY
     Route: 065
  32. EPIPEN [Suspect]
     Active Substance: EPINEPHRINE
     Indication: HYPERSENSITIVITY
     Dosage: (STRENGTH: 0.15MG/0.3ML)SOLUTION FOR INTRAMUSCULAR INJECTION
     Route: 065
  33. OLOPATADINE HYDROCHLORIDE. [Suspect]
     Active Substance: OLOPATADINE HYDROCHLORIDE
     Indication: PRODUCT USED FOR UNKNOWN INDICATION
     Dosage: UNK
     Route: 047
  34. PREDNISONE. [Suspect]
     Active Substance: PREDNISONE
     Dosage: 50 MG, 1 EVERY 1 DAY
     Route: 047
  35. VIGAMOX [Suspect]
     Active Substance: MOXIFLOXACIN HYDROCHLORIDE
     Indication: PRODUCT USED FOR UNKNOWN INDICATION
     Dosage: 3 EVERY 1 DAY
     Route: 047
  36. PREDNISOLONE. [Suspect]
     Active Substance: PREDNISOLONE
     Dosage: 3 EVERY 1 DAY
     Route: 065
  37. MOXIFLOXACIN HYDROCHLORIDE. [Suspect]
     Active Substance: MOXIFLOXACIN HYDROCHLORIDE
     Dosage: 1 EVERY 1 DAY
     Route: 047
  38. PREDNISOLONE SODIUM PHOSPHATE. [Suspect]
     Active Substance: PREDNISOLONE SODIUM PHOSPHATE
     Dosage: 1 DOSAGE FORM, 1 EVERY 1 DAY
     Route: 065
  39. PREDNISOLONE SODIUM PHOSPHATE. [Suspect]
     Active Substance: PREDNISOLONE SODIUM PHOSPHATE
     Dosage: 2 DOSAGE FORM, 1 EVERY 1 DAY
     Route: 065
  40. AMLODIPINE [Suspect]
     Active Substance: AMLODIPINE BESYLATE
     Indication: HYPERTENSION
     Dosage: 10 MILLIGRAM, 1 EVERY 1 DAY
     Route: 065
  41. EPIPEN JR [Suspect]
     Active Substance: EPINEPHRINE
     Indication: DRUG HYPERSENSITIVITY
     Dosage: UNK
     Route: 030
  42. NASONEX [Suspect]
     Active Substance: MOMETASONE FUROATE
     Indication: PRODUCT USED FOR UNKNOWN INDICATION
     Dosage: 2 DOSAGE FORMS 1 EVERY 1 DAY
     Route: 065
  43. AMLODIPINE BESYLATE. [Suspect]
     Active Substance: AMLODIPINE BESYLATE
     Indication: HYPERTENSION
     Dosage: 10.0 MG, 1 EVERY 1 DAY
     Route: 048
  44. AMLODIPINE BESYLATE. [Suspect]
     Active Substance: AMLODIPINE BESYLATE
     Dosage: 10 MILLIGRAM, 1 EVERY 1 DAY
     Route: 065
  45. PREDNISOLONE ACETATE. [Suspect]
     Active Substance: PREDNISOLONE ACETATE
     Dosage: 50 MILLIGRAM, 1 EVERY 1 DAYS
     Route: 065
  46. CIALIS [Suspect]
     Active Substance: TADALAFIL
     Dosage: 1 DOSAGE FORM, 1 EVERY 1 DAY
     Route: 065
  47. PREDNISOLONE ACETATE. [Suspect]
     Active Substance: PREDNISOLONE ACETATE
     Dosage: 2 EVERY 1 DAYS
     Route: 065
  48. CIALIS [Suspect]
     Active Substance: TADALAFIL
     Dosage: UNK
     Route: 065
  49. EPIPEN [Suspect]
     Active Substance: EPINEPHRINE
     Dosage: STRENGTH: 0.3MG/0.3 ML, AUTO INJECTOR, SOLUTION FOR INJECTION
     Route: 065
  50. PREDNISOLONE. [Suspect]
     Active Substance: PREDNISOLONE
     Dosage: 4 DOSAGE FORM, 1 EVERY 1 DAY
     Route: 065
  51. PREDNISOLONE SODIUM PHOSPHATE. [Suspect]
     Active Substance: PREDNISOLONE SODIUM PHOSPHATE
     Dosage: 4 EVERY 1 DAY
     Route: 065
  52. PREDNISOLONE SODIUM PHOSPHATE. [Suspect]
     Active Substance: PREDNISOLONE SODIUM PHOSPHATE
     Dosage: 4 DOSAGE FORM, 1 EVERY 1 DAY
     Route: 065

REACTIONS (1)
  - Hypersensitivity [Recovered/Resolved]
